FAERS Safety Report 19429835 (Version 1)
Quarter: 2021Q2

REPORT INFORMATION
  Report Type: Spontaneous
  Country: CN (occurrence: CN)
  Receive Date: 20210617
  Receipt Date: 20210617
  Transmission Date: 20210717
  Serious: Yes (Life-Threatening)
  Sender: FDA-Public Use
  Company Number: CN-GLAXOSMITHKLINE-CNCH2021APC038520

PATIENT
  Age: 90 Year
  Sex: Female

DRUGS (6)
  1. ATORVASTATIN CALCIUM. [Concomitant]
     Active Substance: ATORVASTATIN CALCIUM
     Indication: HYPERLIPIDAEMIA
     Dosage: 20 MG
  2. OLANZAPINE. [Concomitant]
     Active Substance: OLANZAPINE
     Indication: MENTAL DISORDER
     Dosage: 5 MG
     Route: 048
  3. MOSAPRIDE [Concomitant]
     Active Substance: MOSAPRIDE
     Indication: GASTROINTESTINAL MOTILITY DISORDER
     Dosage: 5 MG, TID
     Route: 048
  4. IBUPROFEN. [Suspect]
     Active Substance: IBUPROFEN
     Indication: ARTHRALGIA
     Dosage: 0.3 G, BID
     Route: 048
     Dates: start: 20210609, end: 20210614
  5. EUTHYROX [Concomitant]
     Active Substance: LEVOTHYROXINE SODIUM
     Indication: HYPOTHYROIDISM
     Dosage: 25 UG, QD
     Route: 048
  6. LORAZEPAM. [Concomitant]
     Active Substance: LORAZEPAM
     Indication: MENTAL DISORDER
     Dosage: 1 MG
     Route: 048

REACTIONS (1)
  - White blood cell count decreased [Recovering/Resolving]

NARRATIVE: CASE EVENT DATE: 20210614
